FAERS Safety Report 9105521 (Version 1)
Quarter: 2013Q1

REPORT INFORMATION
  Report Type: Spontaneous
  Country: US (occurrence: US)
  Receive Date: 20130220
  Receipt Date: 20130220
  Transmission Date: 20140127
  Serious: No
  Sender: FDA-Public Use
  Company Number: US-PFIZER INC-2013062690

PATIENT
  Sex: Female

DRUGS (1)
  1. PROPANOLOL HCL [Suspect]
     Indication: MIGRAINE
     Dosage: 120 MG, 1X/DAY
     Route: 048

REACTIONS (2)
  - Vertigo [Recovered/Resolved]
  - Head discomfort [Recovered/Resolved]
